FAERS Safety Report 5371293-1 (Version None)
Quarter: 2007Q2

REPORT INFORMATION
  Report Type: 
  Country: None (occurrence: None)
  Receive Date: 20070626
  Receipt Date: 20070619
  Transmission Date: 20071010
  Serious: Yes (Death, Other)
  Sender: FDA-Public Use
  Company Number: JP-PFIZER INC-2007050979

PATIENT
  Age: 50 Year
  Sex: Female

DRUGS (3)
  1. SOLU-MEDROL [Suspect]
     Indication: THYMOMA
  2. CISPLATIN [Concomitant]
  3. DOXORUBICIN HYDROCHLORIDE [Concomitant]

REACTIONS (4)
  - GRANULOCYTOPENIA [None]
  - INTERSTITIAL LUNG DISEASE [None]
  - PYREXIA [None]
  - RASH MACULO-PAPULAR [None]
